FAERS Safety Report 8163272 (Version 2)
Quarter: 2012Q4

REPORT INFORMATION
  Report Type: Report from Study
  Country: US (occurrence: US)
  Receive Date: 20110930
  Receipt Date: 20121022
  Transmission Date: 20130627
  Serious: Yes (Other)
  Sender: FDA-Public Use
  Company Number: US-UCBSA-041983

PATIENT
  Age: 24 Month
  Sex: Female
  Weight: 12.73 kg

DRUGS (9)
  1. KEPPRA [Suspect]
     Indication: EPILEPSY
     Route: 064
     Dates: end: 200812
  2. LEVETIRACETAM [Suspect]
     Dosage: TOTAL DAILY DOSE: 1500 MG
     Route: 064
     Dates: start: 200812
  3. LEVOTHYROXINE [Concomitant]
     Indication: HYPOTHYROIDISM
     Dosage: TOTAL DAILY DOSE: 75 MICRO GRAM
     Route: 064
     Dates: end: 20090208
  4. LEVOTHYROXINE [Concomitant]
     Indication: HYPOTHYROIDISM
     Dosage: TOTAL DIALY DOSE: 88 MICRO GRAM
     Route: 064
     Dates: start: 20090208
  5. FOLIC ACID [Concomitant]
     Indication: PREGNANCY
     Dosage: TOTAL DAILY DOSE: 800 MICRO GRAM
     Route: 064
     Dates: start: 20081203
  6. VITAMIN D3 [Concomitant]
     Indication: HYPOTHYROIDISM
     Dosage: TOTAL DAILY DOSE: 1000 IU
     Route: 064
     Dates: start: 20081203
  7. PRENATAL VITAMINS [Concomitant]
     Indication: PREGNANCY
     Dosage: 1 TABLET DAILY
     Route: 064
     Dates: start: 20081215
  8. FIORICET [Concomitant]
     Indication: HEADACHE
     Dosage: 1 TABLET
     Route: 064
     Dates: start: 20090210
  9. HEPARIN [Concomitant]
     Indication: ANTIPHOSPHOLIPID SYNDROME
     Route: 064
     Dates: start: 20090720

REACTIONS (3)
  - Juvenile idiopathic arthritis [Unknown]
  - Febrile convulsion [Unknown]
  - Foetal exposure during pregnancy [Recovered/Resolved]
